FAERS Safety Report 21407087 (Version 4)
Quarter: 2022Q4

REPORT INFORMATION
  Report Type: Spontaneous
  Country: AR (occurrence: AR)
  Receive Date: 20221004
  Receipt Date: 20221208
  Transmission Date: 20230113
  Serious: No
  Sender: FDA-Public Use
  Company Number: AR-PFIZER INC-PV202200062861

PATIENT
  Age: 5 Year
  Sex: Female
  Weight: 19.8 kg

DRUGS (3)
  1. GENOTROPIN [Suspect]
     Active Substance: SOMATROPIN
     Indication: Growth hormone deficiency
     Dosage: 0.9 MG, 6 TIMES X WEEK
     Dates: start: 20200723
  2. GENOTROPIN [Suspect]
     Active Substance: SOMATROPIN
     Dosage: 0.9 MG, 6 TIMES X WEEK
     Dates: start: 20200723
  3. GENOTROPIN [Suspect]
     Active Substance: SOMATROPIN
     Dosage: 0.9 MG, 1X/DAY
     Dates: start: 20200723

REACTIONS (4)
  - Expired device used [Unknown]
  - Device leakage [Recovered/Resolved]
  - Poor quality device used [Unknown]
  - Expired product administered [Unknown]

NARRATIVE: CASE EVENT DATE: 20220901
